FAERS Safety Report 5813307-8 (Version None)
Quarter: 2008Q3

REPORT INFORMATION
  Report Type: 
  Country: None (occurrence: None)
  Receive Date: 20080717
  Receipt Date: 20080715
  Transmission Date: 20090109
  Serious: Yes (Hospitalization)
  Sender: FDA-Public Use
  Company Number: FR-BRISTOL-MYERS SQUIBB COMPANY-14264519

PATIENT
  Age: 89 Year
  Sex: Female

DRUGS (8)
  1. COUMADIN [Suspect]
     Dates: end: 20080221
  2. KARDEGIC [Suspect]
     Dates: end: 20080221
  3. HEMIGOXINE NATIVELLE [Concomitant]
  4. OMEPRAZOLE [Concomitant]
  5. TRINITRIN [Concomitant]
  6. TAREG [Concomitant]
  7. OXYNORM [Concomitant]
  8. DURAGESIC-100 [Concomitant]
     Dosage: PATCH

REACTIONS (4)
  - INTERNATIONAL NORMALISED RATIO INCREASED [None]
  - MELAENA [None]
  - OESOPHAGITIS [None]
  - RECTAL HAEMORRHAGE [None]
